FAERS Safety Report 23417262 (Version 1)
Quarter: 2024Q1

REPORT INFORMATION
  Report Type: Spontaneous
  Country: PK (occurrence: PK)
  Receive Date: 20240118
  Receipt Date: 20240118
  Transmission Date: 20240410
  Serious: Yes (Other)
  Sender: FDA-Public Use
  Company Number: PK-FreseniusKabi-FK202400722

PATIENT
  Age: 41 Year
  Sex: Female
  Weight: 78 kg

DRUGS (3)
  1. CARBOPLATIN [Suspect]
     Active Substance: CARBOPLATIN
     Indication: Ovarian cancer
     Dosage: CARBOPLATIN 150MG  (CYCLE 10)?FORM OF ADMINISTRATION-INJECTION
     Route: 042
     Dates: start: 20231017
  2. PACLITAXEL [Concomitant]
     Active Substance: PACLITAXEL
     Indication: Ovarian cancer
     Dosage: PACLITAXEL 130MG?FORM OF ADMINISTRATION-INJECTION
     Route: 042
     Dates: start: 20231017
  3. PACLITAXEL [Concomitant]
     Active Substance: PACLITAXEL
     Dosage: PACLITAXEL TO 120MG FURTHER TWO DOSES?FORM OF ADMINISTRATION-INJECTION
     Route: 042

REACTIONS (3)
  - Swelling face [Recovered/Resolved with Sequelae]
  - Erythema [Recovered/Resolved with Sequelae]
  - Asphyxia [Recovered/Resolved with Sequelae]

NARRATIVE: CASE EVENT DATE: 20231017
